FAERS Safety Report 5969597 (Version 5)
Quarter: 2017Q1

REPORT INFORMATION
  Report Type: Spontaneous
  Country: JP (occurrence: JP)
  Receive Date: 20060126
  Receipt Date: 20170228
  Transmission Date: 20170429
  Serious: Yes (Death, Hospitalization, Other)
  Sender: FDA-Public Use
  Company Number: JP-BRISTOL-MYERS SQUIBB COMPANY-13248380

PATIENT
  Age: 34 Year
  Sex: Female

DRUGS (5)
  1. GASTER [Concomitant]
     Active Substance: FAMOTIDINE
     Indication: PRODUCT USED FOR UNKNOWN INDICATION
     Dosage: 20 MG, QD
     Route: 042
  2. FURTULON [Suspect]
     Active Substance: DOXIFLURIDINE
     Indication: GASTRIC CANCER
     Dosage: 200 MG, TID
     Route: 048
     Dates: start: 20051227, end: 20051227
  3. TAXOL [Suspect]
     Active Substance: PACLITAXEL
     Indication: GASTRIC CANCER
     Dosage: 30 MG, QD
     Route: 041
     Dates: start: 20051227, end: 20051227
  4. POLARAMINE [Concomitant]
     Active Substance: DEXCHLORPHENIRAMINE MALEATE
     Indication: PRODUCT USED FOR UNKNOWN INDICATION
     Dosage: 5 MG, QD
     Route: 042
  5. SOLU-MEDROL [Concomitant]
     Active Substance: METHYLPREDNISOLONE SODIUM SUCCINATE
     Indication: PRODUCT USED FOR UNKNOWN INDICATION
     Dosage: 500 MG, UNK
     Route: 042

REACTIONS (4)
  - Pancytopenia [Fatal]
  - Encephalopathy [Unknown]
  - Malignant neoplasm progression [Fatal]
  - Upper gastrointestinal haemorrhage [Unknown]

NARRATIVE: CASE EVENT DATE: 20060101
